FAERS Safety Report 6463212-1 (Version None)
Quarter: 2009Q4

REPORT INFORMATION
  Report Type: 
  Country: None (occurrence: None)
  Receive Date: 20091123
  Receipt Date: 20091112
  Transmission Date: 20100525
  Serious: Yes (Hospitalization)
  Sender: FDA-Public Use
  Company Number: 2009SP031039

PATIENT
  Age: 47 Year
  Sex: Female
  Weight: 62 kg

DRUGS (3)
  1. IMPLANON [Suspect]
     Indication: CONTRACEPTION
     Dosage: SC
     Route: 058
     Dates: start: 20060114, end: 20090316
  2. IMPLANON [Suspect]
     Indication: CONTRACEPTION
     Dosage: SC
     Route: 058
     Dates: start: 20090316, end: 20090601
  3. IMPLANON [Suspect]

REACTIONS (4)
  - ANAEMIA [None]
  - MEAN CELL VOLUME DECREASED [None]
  - MENOMETRORRHAGIA [None]
  - SERUM FERRITIN INCREASED [None]
